FAERS Safety Report 4404167-0 (Version None)
Quarter: 2004Q3

REPORT INFORMATION
  Report Type: 
  Country: None (occurrence: None)
  Receive Date: 20040719
  Receipt Date: 20040705
  Transmission Date: 20050211
  Serious: Yes (Hospitalization, Other)
  Sender: FDA-Public Use
  Company Number: FR-JNJFOC-20040603097

PATIENT
  Age: 61 Year
  Sex: Male
  Weight: 80 kg

DRUGS (6)
  1. REMICADE [Suspect]
     Indication: RHEUMATOID ARTHRITIS
     Dosage: 3 MG/KG, INTRAVENOUS
     Route: 040
     Dates: start: 20030307, end: 20040427
  2. AZATHIOPRINE [Concomitant]
  3. CACIT VIT D3 (LEKOVIT CA) [Concomitant]
  4. DIFFU K (POTASSIUM CHLORIDE) TABLETS [Concomitant]
  5. PREVISCAN (FLUINDIONE) [Concomitant]
  6. INIPOMP (PANTOPRAZOLE) CAPSULES [Concomitant]

REACTIONS (1)
  - PEMPHIGUS [None]
